FAERS Safety Report 9668839 (Version 2)
Quarter: 2013Q4

REPORT INFORMATION
  Report Type: Spontaneous
  Country: US (occurrence: US)
  Receive Date: 20131105
  Receipt Date: 20131122
  Transmission Date: 20140711
  Serious: Yes (Hospitalization, Other)
  Sender: FDA-Public Use
  Company Number: 2013SP007615

PATIENT
  Age: 67 Year
  Sex: Female

DRUGS (3)
  1. VANCOMYCIN [Suspect]
     Indication: CELLULITIS
     Route: 042
  2. CLINDAMYCIN [Suspect]
     Indication: CELLULITIS
     Route: 042
  3. CLINDAMYCIN [Suspect]
     Indication: LYMPHOEDEMA
     Route: 042

REACTIONS (5)
  - Acute generalised exanthematous pustulosis [Recovering/Resolving]
  - Multi-organ disorder [Recovering/Resolving]
  - Renal failure acute [Recovering/Resolving]
  - Hypotension [Recovering/Resolving]
  - Lactic acidosis [Recovering/Resolving]
